FAERS Safety Report 5805855-1 (Version None)
Quarter: 2008Q3

REPORT INFORMATION
  Report Type: 
  Country: None (occurrence: None)
  Receive Date: 20080710
  Receipt Date: 20080630
  Transmission Date: 20090109
  Serious: Yes (Death, Other)
  Sender: FDA-Public Use
  Company Number: GB-JNJFOC-20060301934

PATIENT
  Sex: Female
  Weight: 88 kg

DRUGS (25)
  1. INFLIXIMAB [Suspect]
     Route: 042
  2. INFLIXIMAB [Suspect]
     Route: 042
  3. INFLIXIMAB [Suspect]
     Route: 042
  4. INFLIXIMAB [Suspect]
     Indication: ERYTHRODERMIC PSORIASIS
     Dosage: 3 INFUSIONS
     Route: 042
  5. METHOTREXATE [Suspect]
     Indication: PUSTULAR PSORIASIS
     Route: 048
  6. CYCLOSPORINE [Suspect]
     Indication: PUSTULAR PSORIASIS
     Route: 065
  7. AZATHIOPRINE [Suspect]
     Indication: COLITIS ULCERATIVE
     Route: 065
  8. ACITRETIN [Concomitant]
     Route: 065
  9. HYDROXYUREA [Concomitant]
     Route: 065
  10. DAPSONE [Concomitant]
     Route: 065
  11. HYDROXYUREA [Concomitant]
  12. ASPIRIN [Concomitant]
     Route: 065
  13. FUROSEMIDE [Concomitant]
     Route: 065
  14. LANSOPRAZOLE [Concomitant]
     Route: 065
  15. BENZAFIBRATE [Concomitant]
     Route: 065
  16. ALBUTEROL [Concomitant]
     Route: 065
  17. BETAMETHASONE [Concomitant]
     Route: 065
  18. DILTIAZEM [Concomitant]
     Route: 065
  19. DOXAZOSIN MESYLATE [Concomitant]
     Route: 065
  20. BALSALAZINE [Concomitant]
     Route: 065
  21. BECLAZONE [Concomitant]
     Route: 055
  22. BECLOBRATE [Concomitant]
     Route: 065
  23. BETNOVATE [Concomitant]
     Route: 047
  24. IPRATROPIUM BROMIDE [Concomitant]
     Route: 055
  25. LATANOPROST [Concomitant]
     Route: 047

REACTIONS (5)
  - CARDIAC FAILURE CONGESTIVE [None]
  - COLITIS ULCERATIVE [None]
  - INTERSTITIAL LUNG DISEASE [None]
  - RENAL IMPAIRMENT [None]
  - T-CELL LYMPHOMA [None]
